FAERS Safety Report 13076506 (Version 1)
Quarter: 2016Q4

REPORT INFORMATION
  Report Type: Spontaneous
  Country: DE (occurrence: DE)
  Receive Date: 20161230
  Receipt Date: 20161230
  Transmission Date: 20170207
  Serious: Yes (Life-Threatening, Hospitalization)
  Sender: FDA-Public Use
  Company Number: DE-EXELIXIS-CABO-16007857

PATIENT
  Age: 33 Year
  Sex: Female
  Weight: 58 kg

DRUGS (5)
  1. COMETRIQ [Suspect]
     Active Substance: CABOZANTINIB S-MALATE
     Indication: MEDULLARY THYROID CANCER
     Dosage: 60 MG, QD
     Route: 048
     Dates: start: 20141026
  2. DECOSTRIOL [Concomitant]
     Active Substance: CALCITRIOL
     Indication: HYPOPARATHYROIDISM
  3. L-THYROXIN [Concomitant]
     Active Substance: LEVOTHYROXINE SODIUM
     Indication: THYROIDECTOMY
  4. CALCIUM CARBONATE. [Concomitant]
     Active Substance: CALCIUM CARBONATE
     Indication: HYPOPARATHYROIDISM
  5. OPIUM TINCTURE [Concomitant]
     Active Substance: MORPHINE
     Indication: DIARRHOEA

REACTIONS (3)
  - Congestive cardiomyopathy [Not Recovered/Not Resolved]
  - Dyspnoea [Not Recovered/Not Resolved]
  - Pleural effusion [Not Recovered/Not Resolved]

NARRATIVE: CASE EVENT DATE: 20161104
